FAERS Safety Report 8371758-4 (Version None)
Quarter: 2012Q2

REPORT INFORMATION
  Report Type: 
  Country: None (occurrence: None)
  Receive Date: 20120518
  Receipt Date: 20120508
  Transmission Date: 20120825
  Serious: Yes (Death)
  Sender: FDA-Public Use
  Company Number: US-BAXTER-2012BAX000674

PATIENT
  Sex: Male

DRUGS (3)
  1. DIANEAL [Suspect]
     Route: 033
     Dates: end: 20120320
  2. EXTRANEAL [Suspect]
     Indication: PERITONEAL DIALYSIS
     Route: 033
     Dates: end: 20120320
  3. DIANEAL [Suspect]
     Indication: PERITONEAL DIALYSIS
     Route: 033
     Dates: end: 20120320

REACTIONS (5)
  - HAEMORRHAGE [None]
  - PERITONITIS [None]
  - CARDIAC DISORDER [None]
  - INTESTINAL OBSTRUCTION [None]
  - FAILURE TO THRIVE [None]
